FAERS Safety Report 9370814 (Version 3)
Quarter: 2013Q3

REPORT INFORMATION
  Report Type: Spontaneous
  Country: US (occurrence: US)
  Receive Date: 20130626
  Receipt Date: 20130730
  Transmission Date: 20140515
  Serious: Yes (Hospitalization)
  Sender: FDA-Public Use
  Company Number: US-GILEAD-2013-0077854

PATIENT
  Age: 38 Year
  Sex: Female

DRUGS (3)
  1. LETAIRIS [Suspect]
     Indication: PULMONARY HYPERTENSION
     Dosage: 10 MG, QD
     Route: 048
     Dates: start: 20120328
  2. LETAIRIS [Suspect]
     Indication: HEART DISEASE CONGENITAL
  3. SILDENAFIL [Concomitant]
     Indication: PULMONARY HYPERTENSION

REACTIONS (2)
  - Drug therapy [Unknown]
  - Condition aggravated [Unknown]
